FAERS Safety Report 4617857-1 (Version None)
Quarter: 2005Q1

REPORT INFORMATION
  Report Type: 
  Country: None (occurrence: None)
  Receive Date: 20050324
  Receipt Date: 20050313
  Transmission Date: 20050727
  Serious: Yes (Hospitalization)
  Sender: FDA-Public Use
  Company Number: PL-GLAXOSMITHKLINE-B0374598A

PATIENT
  Age: 59 Year
  Sex: Male
  Weight: 62 kg

DRUGS (1)
  1. REQUIP [Suspect]
     Indication: PARKINSON'S DISEASE
     Route: 048
     Dates: start: 20041117

REACTIONS (5)
  - COUGH [None]
  - DELIRIUM [None]
  - DELUSION [None]
  - PNEUMONIA [None]
  - PYREXIA [None]
